FAERS Safety Report 17614190 (Version 1)
Quarter: 2020Q2

REPORT INFORMATION
  Report Type: Report from Study
  Country: DE (occurrence: DE)
  Receive Date: 20200402
  Receipt Date: 20200402
  Transmission Date: 20200713
  Serious: Yes (Hospitalization)
  Sender: FDA-Public Use
  Company Number: DE-ROCHE-2574771

PATIENT
  Age: 56 Year
  Sex: Male

DRUGS (5)
  1. RITUXIMAB. [Suspect]
     Active Substance: RITUXIMAB
     Indication: CHRONIC LYMPHOCYTIC LEUKAEMIA
     Dosage: DATE OF LAST DOSE 27/NOV/2019 (1150 MG)
     Route: 041
     Dates: start: 20190710
  2. VENETOCLAX. [Suspect]
     Active Substance: VENETOCLAX
     Indication: CHRONIC LYMPHOCYTIC LEUKAEMIA
     Dosage: DATE OF LAST DOSE 12/MAR/2020
     Route: 048
     Dates: start: 20190731
  3. TINZAPARIN [Concomitant]
     Active Substance: TINZAPARIN
     Dosage: 3500 IE
     Route: 065
     Dates: start: 20200314, end: 20200316
  4. COTRIMOXAZOLE [Concomitant]
     Active Substance: SULFAMETHOXAZOLE\TRIMETHOPRIM
     Dosage: 960/160 MG
     Route: 065
     Dates: start: 20190712
  5. OLODATEROL;TIOTROPIUM [Concomitant]
     Route: 065
     Dates: start: 20200313

REACTIONS (1)
  - Gastritis [Not Recovered/Not Resolved]

NARRATIVE: CASE EVENT DATE: 20200313
